FAERS Safety Report 19503625 (Version 1)
Quarter: 2021Q3

REPORT INFORMATION
  Report Type: Spontaneous
  Country: JP (occurrence: JP)
  Receive Date: 20210707
  Receipt Date: 20210707
  Transmission Date: 20211014
  Serious: Yes (Other)
  Sender: FDA-Public Use
  Company Number: JP-TAKEDA-2021TUS042085

PATIENT
  Age: 69 Year
  Sex: Male
  Weight: 67 kg

DRUGS (4)
  1. LIALDA [Suspect]
     Active Substance: MESALAMINE
     Indication: COLITIS ULCERATIVE
     Dosage: 4800 MILLIGRAM, QD
     Route: 048
     Dates: start: 20190801, end: 20190810
  2. BIO?THREE [Concomitant]
     Active Substance: HERBALS
     Indication: COLITIS ULCERATIVE
     Dosage: 3 DOSAGE FORM
     Route: 048
     Dates: start: 20190801
  3. XELJANZ [Concomitant]
     Active Substance: TOFACITINIB CITRATE
     Indication: COLITIS ULCERATIVE
     Dosage: 0.02 DOSAGE FORM
     Route: 048
     Dates: start: 20190828, end: 20191120
  4. XELJANZ [Concomitant]
     Active Substance: TOFACITINIB CITRATE
     Dosage: 0.01 DOSAGE FORM
     Route: 048
     Dates: start: 20191121

REACTIONS (4)
  - Enteritis infectious [Recovering/Resolving]
  - Focal peritonitis [Recovering/Resolving]
  - Rash [Recovered/Resolved]
  - Drug intolerance [Recovering/Resolving]

NARRATIVE: CASE EVENT DATE: 20190807
